FAERS Safety Report 12747544 (Version 3)
Quarter: 2021Q4

REPORT INFORMATION
  Report Type: Spontaneous
  Country: US (occurrence: US)
  Receive Date: 20160915
  Receipt Date: 20211102
  Transmission Date: 20220303
  Serious: No
  Sender: FDA-Public Use
  Company Number: US-JAZZ-2016-US-009834

PATIENT
  Age: 47 Year
  Sex: Female

DRUGS (22)
  1. XYREM [Suspect]
     Active Substance: SODIUM OXYBATE
     Indication: Insomnia
     Dosage: 4.5 G, BID
     Route: 048
     Dates: start: 201207
  2. ESTRADIOL [Concomitant]
     Active Substance: ESTRADIOL
  3. LUNESTA [Concomitant]
     Active Substance: ESZOPICLONE
  4. TESTOSTERONE [Concomitant]
     Active Substance: TESTOSTERONE
  5. HYDROCORTISONE [Concomitant]
     Active Substance: HYDROCORTISONE
  6. LOTEMAX [Concomitant]
     Active Substance: LOTEPREDNOL ETABONATE
  7. CLONAZEPAM [Concomitant]
     Active Substance: CLONAZEPAM
  8. AMBIEN CR [Concomitant]
     Active Substance: ZOLPIDEM TARTRATE
  9. TRAVATAN Z [Concomitant]
     Active Substance: TRAVOPROST
  10. VALERIAN [Concomitant]
     Active Substance: VALERIAN
  11. VANIQA [EFLORNITHINE HYDROCHLORIDE] [Concomitant]
  12. ESTRACE [Concomitant]
     Active Substance: ESTRADIOL
  13. SPIRONOLACTONE [Concomitant]
     Active Substance: SPIRONOLACTONE
  14. NYSTATIN [Concomitant]
     Active Substance: NYSTATIN
  15. VIVELLE-DOT [Concomitant]
     Active Substance: ESTRADIOL
  16. ARMOUR THYROID [Concomitant]
     Active Substance: THYROID, PORCINE
  17. DIFLUCAN [Concomitant]
     Active Substance: FLUCONAZOLE
  18. KLONOPIN [Concomitant]
     Active Substance: CLONAZEPAM
  19. NORCO [Concomitant]
     Active Substance: ACETAMINOPHEN\HYDROCODONE BITARTRATE
  20. VALIUM [Concomitant]
     Active Substance: DIAZEPAM
  21. PROGESTERONE [Concomitant]
     Active Substance: PROGESTERONE
  22. MELATONIN [Concomitant]
     Active Substance: MELATONIN

REACTIONS (2)
  - Vitamin D deficiency [Recovering/Resolving]
  - Vitamin D increased [Unknown]

NARRATIVE: CASE EVENT DATE: 20121201
